FAERS Safety Report 20109848 (Version 1)
Quarter: 2021Q4

REPORT INFORMATION
  Report Type: Spontaneous
  Country: US (occurrence: None)
  Receive Date: 20211124
  Receipt Date: 20211124
  Transmission Date: 20220303
  Serious: Yes (Hospitalization)
  Sender: FDA-Public Use
  Company Number: None

PATIENT
  Age: 52 Year
  Sex: Male

DRUGS (13)
  1. STELARA [Suspect]
     Active Substance: USTEKINUMAB
     Indication: Product used for unknown indication
     Route: 058
     Dates: start: 20170407
  2. ozem pic [Concomitant]
  3. oxytoci n [Concomitant]
  4. STELARA [Concomitant]
     Active Substance: USTEKINUMAB
  5. ELIQUIS [Concomitant]
     Active Substance: APIXABAN
  6. OXYCODONE [Concomitant]
     Active Substance: OXYCODONE
  7. METOPROLOL TARTRATE [Concomitant]
     Active Substance: METOPROLOL TARTRATE
  8. Iisinopril [Concomitant]
  9. AMOXICILLIN [Concomitant]
     Active Substance: AMOXICILLIN
  10. FARXIGA [Concomitant]
     Active Substance: DAPAGLIFLOZIN PROPANEDIOL
  11. METFORMIN [Concomitant]
     Active Substance: METFORMIN HYDROCHLORIDE
  12. SIMVASTATIN [Concomitant]
     Active Substance: SIMVASTATIN
  13. ASPIRIN [Concomitant]
     Active Substance: ASPIRIN

REACTIONS (1)
  - Therapy interrupted [None]

NARRATIVE: CASE EVENT DATE: 20211101
